FAERS Safety Report 11582296 (Version 1)
Quarter: 2015Q4

REPORT INFORMATION
  Report Type: Spontaneous
  Country: US (occurrence: US)
  Receive Date: 20151001
  Receipt Date: 20151001
  Transmission Date: 20160304
  Serious: No
  Sender: FDA-Public Use
  Company Number: US-ROCHE-646761

PATIENT
  Sex: Male

DRUGS (2)
  1. COPEGUS [Suspect]
     Active Substance: RIBAVIRIN
     Indication: HEPATITIS C
     Dosage: COMPLETED THERAPY
     Route: 065
     Dates: start: 20090316, end: 20100208
  2. PEGASYS [Suspect]
     Active Substance: PEGINTERFERON ALFA-2A
     Indication: HEPATITIS C
     Dosage: DOSE FORM: PRE-FILLED SYRINGE, THERAPY COMPLETED
     Route: 065
     Dates: start: 20090316, end: 20100208

REACTIONS (6)
  - Muscle atrophy [Unknown]
  - Red blood cell count decreased [Unknown]
  - Hypotonia [Unknown]
  - Fatigue [Not Recovered/Not Resolved]
  - White blood cell count decreased [Unknown]
  - Irritability [Unknown]
